FAERS Safety Report 15289492 (Version 3)
Quarter: 2019Q1

REPORT INFORMATION
  Report Type: Report from Study
  Country: US (occurrence: US)
  Receive Date: 20180817
  Receipt Date: 20190212
  Transmission Date: 20190417
  Serious: Yes (Other)
  Sender: FDA-Public Use
  Company Number: US-AMGEN-USASP2018039618

PATIENT
  Age: 81 Year
  Sex: Female

DRUGS (2)
  1. PROLIA [Suspect]
     Active Substance: DENOSUMAB
     Indication: OSTEOPOROSIS POSTMENOPAUSAL
     Dosage: 60 MG, Q6MO
     Route: 065
     Dates: start: 20170301, end: 20170301
  2. PENICILLIN [Concomitant]
     Active Substance: PENICILLIN
     Dosage: UNK

REACTIONS (19)
  - Neck pain [Not Recovered/Not Resolved]
  - Headache [Not Recovered/Not Resolved]
  - Confusional state [Unknown]
  - Hypoacusis [Unknown]
  - Tendonitis [Recovered/Resolved]
  - Ageusia [Unknown]
  - Bone swelling [Not Recovered/Not Resolved]
  - Ear pain [Not Recovered/Not Resolved]
  - Pain [Not Recovered/Not Resolved]
  - Tooth loss [Unknown]
  - Weight decreased [Unknown]
  - Fatigue [Unknown]
  - Tooth extraction [Unknown]
  - Nodule [Unknown]
  - Oral pain [Not Recovered/Not Resolved]
  - Oral disorder [Not Recovered/Not Resolved]
  - Trismus [Unknown]
  - Feeding disorder [Unknown]
  - Mastication disorder [Unknown]

NARRATIVE: CASE EVENT DATE: 2017
